FAERS Safety Report 10016062 (Version 1)
Quarter: 2014Q1

REPORT INFORMATION
  Report Type: Spontaneous
  Country: PE (occurrence: PE)
  Receive Date: 20140317
  Receipt Date: 20140317
  Transmission Date: 20141002
  Serious: Yes (Other)
  Sender: FDA-Public Use
  Company Number: PE-PFIZER INC-2014075418

PATIENT
  Age: 85 Year
  Sex: Female

DRUGS (1)
  1. LYRICA [Suspect]
     Indication: HERPES ZOSTER
     Dosage: 75 MG, UNK
     Route: 048

REACTIONS (4)
  - Femur fracture [Unknown]
  - Cerebrovascular accident [Not Recovered/Not Resolved]
  - Bedridden [Unknown]
  - Aphasia [Not Recovered/Not Resolved]
